FAERS Safety Report 11219474 (Version 2)
Quarter: 2015Q4

REPORT INFORMATION
  Report Type: Spontaneous
  Country: US (occurrence: US)
  Receive Date: 20150625
  Receipt Date: 20151007
  Transmission Date: 20160304
  Serious: Yes (Hospitalization)
  Sender: FDA-Public Use
  Company Number: US-PFIZER INC-2015207864

PATIENT
  Age: 47 Year
  Sex: Female
  Weight: 84 kg

DRUGS (12)
  1. FLEXERIL [Concomitant]
     Active Substance: CYCLOBENZAPRINE HYDROCHLORIDE
     Dosage: UNK
     Dates: end: 2015
  2. KLONOPIN [Concomitant]
     Active Substance: CLONAZEPAM
     Dosage: UNK
     Dates: start: 2005
  3. PROMETHAZINE [Concomitant]
     Active Substance: PROMETHAZINE\PROMETHAZINE HYDROCHLORIDE
     Dosage: UNK
     Dates: start: 2006
  4. ALBUTEROL INHALER [Concomitant]
     Active Substance: ALBUTEROL
     Dosage: UNK
     Dates: start: 2004
  5. NEURONTIN [Suspect]
     Active Substance: GABAPENTIN
     Indication: FIBROMYALGIA
     Dosage: 600 MG, 3X/DAY
  6. CHLORTHALIDONE. [Concomitant]
     Active Substance: CHLORTHALIDONE
     Dosage: UNK
     Dates: start: 2010
  7. AMBIEN [Concomitant]
     Active Substance: ZOLPIDEM TARTRATE
     Dosage: UNK
     Dates: start: 2005
  8. ATENOLOL. [Concomitant]
     Active Substance: ATENOLOL
     Dosage: UNK
     Dates: start: 2000
  9. METHADONE [Concomitant]
     Active Substance: METHADONE HYDROCHLORIDE
     Dosage: UNK
     Dates: start: 2009
  10. CYMBALTA [Concomitant]
     Active Substance: DULOXETINE HYDROCHLORIDE
     Dosage: UNK
     Dates: start: 2013
  11. OXYCODONE [Concomitant]
     Active Substance: OXYCODONE
     Dosage: UNK
     Dates: start: 2009
  12. ARTHROTEC 50 [Concomitant]
     Dosage: UNK
     Dates: start: 2010

REACTIONS (3)
  - Blood potassium decreased [Unknown]
  - Drug ineffective [Unknown]
  - Vitamin D decreased [Unknown]
